FAERS Safety Report 14329828 (Version 3)
Quarter: 2018Q1

REPORT INFORMATION
  Report Type: Other
  Country: DE (occurrence: DE)
  Receive Date: 20171227
  Receipt Date: 20180328
  Transmission Date: 20180509
  Serious: Yes (Other)
  Sender: FDA-Public Use
  Company Number: DE-VALIDUS PHARMACEUTICALS LLC-DE-2017VAL001690

PATIENT
  Age: 6 Year
  Sex: Male

DRUGS (10)
  1. DIAMOX SODIUM [Suspect]
     Active Substance: ACETAZOLAMIDE SODIUM
     Indication: IDIOPATHIC INTRACRANIAL HYPERTENSION
     Dosage: 625 MG, QD
     Route: 065
     Dates: start: 20170711, end: 20170821
  2. COLCHICINE. [Concomitant]
     Active Substance: COLCHICINE
     Indication: PRODUCT USED FOR UNKNOWN INDICATION
     Dosage: UNK
     Dates: start: 20150717
  3. LASIX [Suspect]
     Active Substance: FUROSEMIDE
     Indication: INTRACRANIAL PRESSURE INCREASED
     Dosage: 2 MG, TID
     Route: 048
     Dates: start: 20170821
  4. BICANORM [Concomitant]
     Active Substance: SODIUM BICARBONATE
     Indication: PRODUCT USED FOR UNKNOWN INDICATION
     Dosage: UNK
     Dates: start: 20170714, end: 20170821
  5. ILARIS [Suspect]
     Active Substance: CANAKINUMAB
     Indication: FAMILIAL MEDITERRANEAN FEVER
     Dosage: 4 MG/KG, MONTHLY
     Route: 058
     Dates: start: 20170216
  6. ILARIS [Suspect]
     Active Substance: CANAKINUMAB
     Indication: ARTHRALGIA
     Dosage: UNK
     Route: 058
     Dates: start: 20170825
  7. OMEPRAZOLE. [Concomitant]
     Active Substance: OMEPRAZOLE
     Indication: PRODUCT USED FOR UNKNOWN INDICATION
     Dosage: UNK
     Dates: start: 201411
  8. LASIX [Suspect]
     Active Substance: FUROSEMIDE
     Indication: IDIOPATHIC INTRACRANIAL HYPERTENSION
     Dosage: 4 MG, TID
     Route: 048
     Dates: start: 20170828
  9. LASIX [Suspect]
     Active Substance: FUROSEMIDE
     Dosage: 8 MG, TID
     Route: 048
  10. IBUPROFEN. [Concomitant]
     Active Substance: IBUPROFEN
     Indication: PRODUCT USED FOR UNKNOWN INDICATION
     Dosage: UNK

REACTIONS (7)
  - Drug interaction [Unknown]
  - Drug ineffective [Unknown]
  - Idiopathic intracranial hypertension [Not Recovered/Not Resolved]
  - Familial mediterranean fever [Recovered/Resolved]
  - Diarrhoea [Unknown]
  - Vitamin D deficiency [Unknown]
  - Intracranial pressure increased [Not Recovered/Not Resolved]

NARRATIVE: CASE EVENT DATE: 20170711
